FAERS Safety Report 9920603 (Version 1)
Quarter: 2014Q1

REPORT INFORMATION
  Report Type: Spontaneous
  Country: US (occurrence: US)
  Receive Date: 20140224
  Receipt Date: 20140224
  Transmission Date: 20141002
  Serious: No
  Sender: FDA-Public Use
  Company Number: US-NOVEN-13US008522

PATIENT
  Age: 55 Year
  Sex: Female
  Weight: 52.15 kg

DRUGS (1)
  1. MINIVELLE [Suspect]
     Indication: MENOPAUSE
     Dosage: UNK
     Route: 062
     Dates: start: 2012

REACTIONS (5)
  - Application site rash [Recovered/Resolved]
  - Drug administered at inappropriate site [Recovered/Resolved]
  - Inappropriate schedule of drug administration [Not Recovered/Not Resolved]
  - Incorrect drug administration duration [Not Recovered/Not Resolved]
  - Product quality issue [Not Recovered/Not Resolved]
